FAERS Safety Report 8507272-2 (Version None)
Quarter: 2012Q3

REPORT INFORMATION
  Report Type: 
  Country: None (occurrence: None)
  Receive Date: 20120712
  Receipt Date: 20120705
  Transmission Date: 20120928
  Serious: Yes (Other)
  Sender: FDA-Public Use
  Company Number: GB-SANOFI-AVENTIS-2012SA018556

PATIENT
  Age: 45 Year
  Sex: Male
  Weight: 84 kg

DRUGS (2)
  1. RAMIPRIL [Concomitant]
     Route: 048
     Dates: start: 20100506
  2. MULTAQ [Suspect]
     Indication: ATRIAL FIBRILLATION
     Route: 048
     Dates: start: 20120113

REACTIONS (1)
  - HYPERTHYROIDISM [None]
